FAERS Safety Report 7930498-3 (Version None)
Quarter: 2011Q4

REPORT INFORMATION
  Report Type: 
  Country: None (occurrence: None)
  Receive Date: 20111121
  Receipt Date: 20090319
  Transmission Date: 20120403
  Serious: Yes (Hospitalization, Other)
  Sender: FDA-Public Use
  Company Number: PHHY2010TW24259

PATIENT
  Sex: Male

DRUGS (4)
  1. GLEEVEC [Suspect]
     Indication: CHRONIC MYELOID LEUKAEMIA
     Dosage: 600 MG/800 MG,
     Route: 048
     Dates: start: 20090303
  2. GLEEVEC [Suspect]
     Dosage: RECEIVED 4 PILLS
     Route: 048
  3. GLEEVEC [Suspect]
     Dosage: 1000 MG
  4. GLEEVEC [Suspect]
     Dosage: 800 MG

REACTIONS (3)
  - RETINAL DETACHMENT [None]
  - TUBERCULOSIS [None]
  - WHITE BLOOD CELL COUNT INCREASED [None]
